FAERS Safety Report 8571924-9 (Version None)
Quarter: 2012Q2

REPORT INFORMATION
  Report Type: 
  Country: None (occurrence: None)
  Receive Date: 20120418
  Receipt Date: 20100218
  Transmission Date: 20120825
  Serious: Yes (Other)
  Sender: FDA-Public Use
  Company Number: PHHY2009US53292

PATIENT
  Age: 49 Year
  Sex: Male

DRUGS (2)
  1. DIOVAN HCT [Suspect]
     Indication: HYPERTENSION
     Dosage: 80/12.5 MG DAILY, ORAL
     Route: 048
     Dates: start: 20080318, end: 20091001
  2. LIPITOR [Concomitant]

REACTIONS (7)
  - PRESYNCOPE [None]
  - PARAESTHESIA [None]
  - FALL [None]
  - HYPOAESTHESIA [None]
  - PARAESTHESIA ORAL [None]
  - DIZZINESS [None]
  - SPEECH DISORDER [None]
